FAERS Safety Report 8247056-6 (Version None)
Quarter: 2012Q1

REPORT INFORMATION
  Report Type: 
  Country: None (occurrence: None)
  Receive Date: 20120330
  Receipt Date: 20120323
  Transmission Date: 20120608
  Serious: Yes (Death, Other)
  Sender: FDA-Public Use
  Company Number: GB-JNJFOC-20120313083

PATIENT

DRUGS (3)
  1. DOXORUBICIN HCL [Suspect]
     Indication: BONE SARCOMA
     Route: 042
  2. ANTIEMETICS [Concomitant]
     Route: 065
  3. CISPLATIN [Suspect]
     Indication: BONE SARCOMA
     Route: 042

REACTIONS (9)
  - DEATH [None]
  - CARDIOTOXICITY [None]
  - LEUKOPENIA [None]
  - STOMATITIS [None]
  - THROMBOCYTOPENIA [None]
  - INFECTION [None]
  - NAUSEA [None]
  - VOMITING [None]
  - NEUROTOXICITY [None]
